FAERS Safety Report 10125110 (Version 2)
Quarter: 2015Q1

REPORT INFORMATION
  Report Type: Other
  Country: US (occurrence: US)
  Receive Date: 20140427
  Receipt Date: 20150209
  Transmission Date: 20150720
  Serious: Yes (Hospitalization, Other)
  Sender: FDA-Public Use
  Company Number: US-GSKPPD-2014GSK026305

PATIENT
  Age: 85 Year
  Sex: Female
  Weight: 61.35 kg

DRUGS (5)
  1. COREG [Concomitant]
     Active Substance: CARVEDILOL
  2. AMIODARONE [Concomitant]
     Active Substance: AMIODARONE
  3. ASPIRIN. [Concomitant]
     Active Substance: ASPIRIN
  4. AVANDIA [Suspect]
     Active Substance: ROSIGLITAZONE MALEATE
     Indication: DIABETES MELLITUS
     Dosage: AVANDIA WAS NOT LISTED AMONG THE PATIENTS RECORDS REVIEWED.
     Route: 048
  5. BUMEX [Concomitant]
     Active Substance: BUMETANIDE

REACTIONS (3)
  - Myocardial infarction [Unknown]
  - Cardiac failure congestive [Recovered/Resolved]
  - Coronary artery disease [Recovered/Resolved]

NARRATIVE: CASE EVENT DATE: 20060216
